FAERS Safety Report 13705454 (Version 2)
Quarter: 2017Q3

REPORT INFORMATION
  Report Type: Spontaneous
  Country: US (occurrence: US)
  Receive Date: 20170630
  Receipt Date: 20170721
  Transmission Date: 20171127
  Serious: Yes (Other)
  Sender: FDA-Public Use
  Company Number: US-BAYER-2017-124316

PATIENT
  Sex: Female

DRUGS (1)
  1. MIRENA [Suspect]
     Active Substance: LEVONORGESTREL
     Indication: CONTRACEPTION
     Dosage: 20 MCG/24HR, CONT
     Route: 015
     Dates: start: 20130222, end: 20170613

REACTIONS (4)
  - Embedded device [Not Recovered/Not Resolved]
  - Complication of device removal [None]
  - Device breakage [Not Recovered/Not Resolved]
  - Device difficult to use [None]

NARRATIVE: CASE EVENT DATE: 20170613
